FAERS Safety Report 16597045 (Version 1)
Quarter: 2019Q3

REPORT INFORMATION
  Report Type: Spontaneous
  Country: AU (occurrence: AU)
  Receive Date: 20190719
  Receipt Date: 20190719
  Transmission Date: 20191004
  Serious: Yes (Other)
  Sender: FDA-Public Use
  Company Number: AU-CONCORDIA PHARMACEUTICALS INC.-GSH201907-001704

PATIENT
  Sex: Male

DRUGS (10)
  1. PLAQUENIL [Suspect]
     Active Substance: HYDROXYCHLOROQUINE SULFATE
     Indication: RHEUMATOID ARTHRITIS
     Route: 065
  2. METHOTREXATE. [Suspect]
     Active Substance: METHOTREXATE
     Indication: PRODUCT USED FOR UNKNOWN INDICATION
     Route: 065
  3. TRITACE [Concomitant]
     Active Substance: RAMIPRIL
     Indication: HYPERTENSION
  4. PANADOL [Concomitant]
     Active Substance: ACETAMINOPHEN
  5. PREDNISOLONE. [Concomitant]
     Active Substance: PREDNISOLONE
     Indication: RHEUMATOID ARTHRITIS
  6. XELJANZ [Suspect]
     Active Substance: TOFACITINIB CITRATE
     Route: 065
     Dates: start: 201805, end: 20181001
  7. METHOTREXATE. [Suspect]
     Active Substance: METHOTREXATE
     Route: 065
     Dates: start: 20181205
  8. CELEBREX [Concomitant]
     Active Substance: CELECOXIB
  9. XELJANZ [Suspect]
     Active Substance: TOFACITINIB CITRATE
     Route: 065
     Dates: start: 20190425
  10. AMLODIPINE [Concomitant]
     Active Substance: AMLODIPINE BESYLATE
     Indication: HYPERTENSION

REACTIONS (4)
  - Squamous cell carcinoma of skin [Unknown]
  - Pollakiuria [Recovering/Resolving]
  - Oral herpes [Recovering/Resolving]
  - Drug ineffective [Unknown]
